FAERS Safety Report 4271503-8 (Version None)
Quarter: 2004Q1

REPORT INFORMATION
  Report Type: 
  Country: None (occurrence: None)
  Receive Date: 20040113
  Receipt Date: 20040108
  Transmission Date: 20041129
  Serious: Yes (Other)
  Sender: FDA-Public Use
  Company Number: TPA2003A01737

PATIENT
  Sex: Female

DRUGS (2)
  1. ACTOS [Suspect]
     Dosage: PER ORAL
     Route: 048
     Dates: end: 20031216
  2. UNK SULFONYLUREA(ALL OTHER THERAPEUTIC PRODUCTS) [Concomitant]

REACTIONS (4)
  - HEPATIC ENZYME INCREASED [None]
  - JAUNDICE [None]
  - LIVER DISORDER [None]
  - PANCREATIC CARCINOMA [None]
